FAERS Safety Report 22134037 (Version 1)
Quarter: 2023Q1

REPORT INFORMATION
  Report Type: Spontaneous
  Country: CA (occurrence: CA)
  Receive Date: 20230324
  Receipt Date: 20230324
  Transmission Date: 20230418
  Serious: Yes (Other)
  Sender: FDA-Public Use
  Company Number: CA-AUROBINDO-AUR-APL-2023-012438

PATIENT
  Age: 37 Year
  Sex: Male

DRUGS (4)
  1. CEPHALEXIN [Suspect]
     Active Substance: CEPHALEXIN
     Indication: Cellulitis
     Dosage: UNK
     Route: 065
  2. THIAMINE [Concomitant]
     Active Substance: THIAMINE
     Indication: Product used for unknown indication
     Dosage: UNK
     Route: 065
  3. FOLIC ACID [Concomitant]
     Active Substance: FOLIC ACID
     Indication: Product used for unknown indication
     Dosage: UNK
     Route: 065
  4. LORAZEPAM [Concomitant]
     Active Substance: LORAZEPAM
     Indication: Alcohol withdrawal syndrome
     Dosage: UNK
     Route: 065

REACTIONS (2)
  - Cholestatic liver injury [Unknown]
  - Jaundice [Unknown]
